FAERS Safety Report 8768581 (Version 2)
Quarter: 2014Q1

REPORT INFORMATION
  Report Type: Spontaneous
  Country: US (occurrence: US)
  Receive Date: 20120904
  Receipt Date: 20140306
  Transmission Date: 20141002
  Serious: Yes (Death, Life-Threatening, Hospitalization, Other)
  Sender: FDA-Public Use
  Company Number: US-B.I. PHARMACEUTICALS,INC./RIDGEFIELD-2012-EU-04285GD

PATIENT
  Age: 64 Year
  Sex: Male

DRUGS (5)
  1. PRADAXA [Suspect]
     Indication: ATRIAL FIBRILLATION
     Dosage: 300 MG
     Route: 048
  2. LISINOPRIL [Concomitant]
     Route: 065
  3. METOPROLOL [Concomitant]
     Route: 065
  4. METFORMIN [Concomitant]
     Route: 065
  5. SIMVASTATIN [Concomitant]
     Route: 065

REACTIONS (11)
  - Traumatic intracranial haemorrhage [Fatal]
  - Fall [Fatal]
  - Cerebral infarction [Fatal]
  - Subdural haematoma [Fatal]
  - Brain herniation [Fatal]
  - Neurological decompensation [Unknown]
  - Brain midline shift [Unknown]
  - Subarachnoid haemorrhage [Unknown]
  - Skull fracture [Unknown]
  - Confusional state [Unknown]
  - Headache [Unknown]
